FAERS Safety Report 8028675-9 (Version None)
Quarter: 2012Q1

REPORT INFORMATION
  Report Type: 
  Country: None (occurrence: None)
  Receive Date: 20120104
  Receipt Date: 20111221
  Transmission Date: 20120608
  Serious: Yes (Other)
  Sender: FDA-Public Use
  Company Number: 2011P1014894

PATIENT
  Age: 27 Year
  Sex: Male
  Weight: 88.4514 kg

DRUGS (2)
  1. METHYLPREDNISOLONE 4MG TAB [Suspect]
     Indication: EXPOSURE TO TOXIC AGENT
     Dosage: 6 MG ; 4 MG;QD
     Dates: start: 20111201, end: 20111201
  2. METHYLPREDNISOLONE 4MG TAB [Suspect]
     Indication: EXPOSURE TO TOXIC AGENT
     Dosage: 6 MG ; 4 MG;QD
     Dates: start: 20111213, end: 20111201

REACTIONS (6)
  - DRUG INTERACTION [None]
  - RASH [None]
  - NAUSEA [None]
  - ANGER [None]
  - VOMITING [None]
  - HOMICIDAL IDEATION [None]
